FAERS Safety Report 5465478-3 (Version None)
Quarter: 2007Q3

REPORT INFORMATION
  Report Type: 
  Country: None (occurrence: None)
  Receive Date: 20070920
  Receipt Date: 20070914
  Transmission Date: 20080115
  Serious: Yes (Hospitalization)
  Sender: FDA-Public Use
  Company Number: 163-21880-06070422

PATIENT
  Age: 73 Year
  Sex: Male
  Weight: 92 kg

DRUGS (4)
  1. REVLIMID [Suspect]
     Indication: MULTIPLE MYELOMA
     Dosage: 25 MG, QD X1-21 Q28D, ORAL
     Route: 048
     Dates: start: 20060207, end: 20060711
  2. DEXAMETHASONE TAB [Suspect]
     Indication: MULTIPLE MYELOMA
     Dosage: 40 MG, QD DAYS 1-4, 9-12 AND 17-20 Q28D, ORAL
     Route: 048
     Dates: start: 20060207, end: 20060611
  3. PRBC (BLOOD CELLS, PACKED HUMAN) [Concomitant]
  4. BENADRYL [Concomitant]

REACTIONS (23)
  - ATELECTASIS [None]
  - DEEP VEIN THROMBOSIS [None]
  - DIZZINESS [None]
  - DYSPNOEA EXERTIONAL [None]
  - HAEMATOCRIT DECREASED [None]
  - HAEMOGLOBIN DECREASED [None]
  - HAEMOTHORAX [None]
  - HEAD INJURY [None]
  - HYPONATRAEMIA [None]
  - HYPOTENSION [None]
  - MUSCULOSKELETAL PAIN [None]
  - MYOCARDIAL INFARCTION [None]
  - MYOCARDIAL ISCHAEMIA [None]
  - OEDEMA PERIPHERAL [None]
  - PERIPHERAL ARTERIAL OCCLUSIVE DISEASE [None]
  - PLATELET COUNT DECREASED [None]
  - PLEURAL EFFUSION [None]
  - PULMONARY EMBOLISM [None]
  - PULMONARY HAEMORRHAGE [None]
  - SYNCOPE [None]
  - THROMBOSIS [None]
  - VENOUS THROMBOSIS LIMB [None]
  - WEIGHT DECREASED [None]
